FAERS Safety Report 7073395-0 (Version None)
Quarter: 2010Q4

REPORT INFORMATION
  Report Type: 
  Country: None (occurrence: None)
  Receive Date: 20101028
  Receipt Date: 20101028
  Transmission Date: 20110411
  Serious: Yes (Hospitalization)
  Sender: FDA-Public Use
  Company Number: None

PATIENT
  Age: 68 Year
  Sex: Male
  Weight: 74.3899 kg

DRUGS (3)
  1. CISPLATIN [Suspect]
     Indication: OESOPHAGEAL ADENOCARCINOMA
     Dosage: 80MG / M2 Q28D IV
     Route: 042
     Dates: start: 20100802, end: 20100830
  2. FLUOROURACIL [Suspect]
     Indication: OESOPHAGEAL ADENOCARCINOMA
     Dosage: 1000MG/M2/DAY Q28D OVER 96 HR IV
     Route: 042
     Dates: start: 20100802, end: 20100903
  3. PANITUMUMAB [Suspect]

REACTIONS (7)
  - ATRIAL FIBRILLATION [None]
  - COLITIS [None]
  - RADIATION OESOPHAGITIS [None]
  - RECTAL HAEMORRHAGE [None]
  - RENAL FAILURE ACUTE [None]
  - SEPSIS [None]
  - SKIN LACERATION [None]
